FAERS Safety Report 7965648-6 (Version None)
Quarter: 2011Q4

REPORT INFORMATION
  Report Type: 
  Country: None (occurrence: None)
  Receive Date: 20111208
  Receipt Date: 20101129
  Transmission Date: 20120403
  Serious: Yes (Other)
  Sender: FDA-Public Use
  Company Number: GB-PFIZER INC-2011279220

PATIENT
  Age: 24 Year
  Sex: Female
  Weight: 50 kg

DRUGS (1)
  1. SULFASALAZINE [Suspect]
     Indication: RHEUMATOID ARTHRITIS
     Dosage: UNK

REACTIONS (18)
  - CUSHING'S SYNDROME [None]
  - HAIR COLOUR CHANGES [None]
  - DRY THROAT [None]
  - CRYING [None]
  - SJOGREN'S SYNDROME [None]
  - DYSPHAGIA [None]
  - PANIC ATTACK [None]
  - PAIN IN EXTREMITY [None]
  - PAIN [None]
  - CHOKING [None]
  - ARTHRITIS [None]
  - SEXUAL DYSFUNCTION [None]
  - DEPRESSED MOOD [None]
  - APHAGIA [None]
  - WEIGHT DECREASED [None]
  - MOBILITY DECREASED [None]
  - ARTHROPATHY [None]
  - HEADACHE [None]
